FAERS Safety Report 7530039-9 (Version None)
Quarter: 2011Q2

REPORT INFORMATION
  Report Type: 
  Country: None (occurrence: None)
  Receive Date: 20110607
  Receipt Date: 20110524
  Transmission Date: 20111010
  Serious: Yes (Other)
  Sender: FDA-Public Use
  Company Number: PHHY2011KR44550

PATIENT
  Sex: Male

DRUGS (2)
  1. GLEEVEC [Suspect]
     Indication: GASTROINTESTINAL STROMAL TUMOUR
     Dosage: 400 MG, UNK
     Route: 048
     Dates: start: 20091005, end: 20110515
  2. GLEEVEC [Suspect]
     Dosage: 600 MG, UNK
     Route: 048
     Dates: start: 20110516

REACTIONS (4)
  - GENERAL PHYSICAL CONDITION ABNORMAL [None]
  - NEOPLASM MALIGNANT [None]
  - ANAL NEOPLASM [None]
  - GENERALISED OEDEMA [None]
